FAERS Safety Report 25261733 (Version 1)
Quarter: 2025Q2

REPORT INFORMATION
  Report Type: Spontaneous
  Country: US (occurrence: US)
  Receive Date: 20250502
  Receipt Date: 20250502
  Transmission Date: 20250716
  Serious: No
  Sender: Tarsus Pharmaceuticals
  Company Number: US-TARSUS PHARMACEUTICALS-TSP-US-2025-000352

PATIENT

DRUGS (2)
  1. XDEMVY [Suspect]
     Active Substance: LOTILANER
     Indication: Ocular demodicosis
     Route: 065
  2. XDEMVY [Suspect]
     Active Substance: LOTILANER
     Indication: Dry eye

REACTIONS (2)
  - Therapy interrupted [Unknown]
  - Inability to afford medication [Unknown]
